FAERS Safety Report 5965351-8 (Version None)
Quarter: 2008Q4

REPORT INFORMATION
  Report Type: 
  Country: None (occurrence: None)
  Receive Date: 20081125
  Receipt Date: 20081121
  Transmission Date: 20090506
  Serious: Yes (Life-Threatening, Other)
  Sender: FDA-Public Use
  Company Number: FR-ASTRAZENECA-2008CG01357

PATIENT
  Age: 26348 Day
  Sex: Male

DRUGS (2)
  1. XYLOCAINE [Suspect]
     Indication: LOCAL ANAESTHESIA
     Route: 049
     Dates: start: 20080916, end: 20080916
  2. ATARAX [Concomitant]
     Route: 048
     Dates: start: 20080916, end: 20080916

REACTIONS (3)
  - CARDIAC FAILURE ACUTE [None]
  - OXYGEN SATURATION DECREASED [None]
  - TACHYCARDIA [None]
